FAERS Safety Report 17623778 (Version 3)
Quarter: 2020Q2

REPORT INFORMATION
  Report Type: Spontaneous
  Country: JP (occurrence: JP)
  Receive Date: 20200403
  Receipt Date: 20200626
  Transmission Date: 20200713
  Serious: Yes (Death, Life-Threatening)
  Sender: FDA-Public Use
  Company Number: JP-MALLINCKRODT-T202001573

PATIENT
  Age: 72 Year
  Sex: Male

DRUGS (10)
  1. HERBAL NOS [Concomitant]
     Active Substance: HERBALS
     Indication: GASTROPTOSIS
     Dosage: UNK
     Route: 048
     Dates: start: 20190709, end: 20190726
  2. NEOSTIGMINE. [Concomitant]
     Active Substance: NEOSTIGMINE METHYLSULFATE
     Indication: INTESTINAL PSEUDO-OBSTRUCTION
     Dosage: UNK
     Route: 065
  3. AMITIZA [Suspect]
     Active Substance: LUBIPROSTONE
     Dosage: 12 MICROGRAM, QD
     Route: 048
     Dates: start: 20190724, end: 20190731
  4. NORADRENALINE [Concomitant]
     Active Substance: NOREPINEPHRINE
     Indication: POSTOPERATIVE CARE
     Dosage: 0.1 ?G/KG/MIN, CONTIONOUS INFUSION
     Route: 042
  5. SODIUM PICOSULFATE [Concomitant]
     Active Substance: SODIUM PICOSULFATE
     Indication: CONSTIPATION
     Dosage: 5-15 DROPS DAILY
     Route: 048
     Dates: start: 20190710, end: 20190717
  6. HERBAL NOS [Concomitant]
     Active Substance: HERBALS
     Indication: DYSPEPSIA
  7. DAIKENCHUTO [Concomitant]
     Active Substance: HERBALS
     Indication: ABDOMINAL DISTENSION
     Dosage: UNK
     Route: 048
     Dates: start: 20190709, end: 20190726
  8. AMITIZA [Suspect]
     Active Substance: LUBIPROSTONE
     Indication: CONSTIPATION
     Dosage: UNK
     Route: 048
     Dates: start: 20190717, end: 20190723
  9. MIYA-BM [Concomitant]
     Active Substance: CLOSTRIDIUM BUTYRICUM SPORES STRAIN M-55
     Indication: CONSTIPATION
     Dosage: UNK
     Route: 048
     Dates: start: 20190702, end: 20190731
  10. MIYA-BM [Concomitant]
     Active Substance: CLOSTRIDIUM BUTYRICUM SPORES STRAIN M-55
     Indication: DIARRHOEA

REACTIONS (6)
  - Multiple organ dysfunction syndrome [Fatal]
  - Diarrhoea [Recovering/Resolving]
  - Ileus [Not Recovered/Not Resolved]
  - Bacterial translocation [Not Recovered/Not Resolved]
  - Sepsis [Fatal]
  - Contraindicated product administered [Unknown]

NARRATIVE: CASE EVENT DATE: 20190717
